FAERS Safety Report 19399672 (Version 32)
Quarter: 2025Q4

REPORT INFORMATION
  Report Type: Report from Study
  Country: CA (occurrence: CA)
  Receive Date: 20210610
  Receipt Date: 20251219
  Transmission Date: 20260117
  Serious: Yes (Other)
  Sender: TAKEDA
  Company Number: CA-TAKEDA-CA202018912

PATIENT
  Age: 71 Year
  Sex: Female

DRUGS (41)
  1. TEDUGLUTIDE [Suspect]
     Active Substance: TEDUGLUTIDE
     Indication: Short-bowel syndrome
     Dosage: 2.6 MILLIGRAM, QD
     Dates: start: 20190913
  2. TEDUGLUTIDE [Suspect]
     Active Substance: TEDUGLUTIDE
     Dosage: 2.6 MILLIGRAM, QD
  3. TEDUGLUTIDE [Suspect]
     Active Substance: TEDUGLUTIDE
     Dosage: 2.4 MILLIGRAM, QD
  4. TEDUGLUTIDE [Suspect]
     Active Substance: TEDUGLUTIDE
     Dosage: 2.4 MILLIGRAM, QD
  5. TEDUGLUTIDE [Suspect]
     Active Substance: TEDUGLUTIDE
     Dosage: 2.6 MILLIGRAM, QOD
  6. TEDUGLUTIDE [Suspect]
     Active Substance: TEDUGLUTIDE
     Dosage: UNK UNK, QD
  7. TEDUGLUTIDE [Suspect]
     Active Substance: TEDUGLUTIDE
     Dosage: 2.6 MILLIGRAM, QD
  8. TEDUGLUTIDE [Suspect]
     Active Substance: TEDUGLUTIDE
     Dosage: 2.6 MILLIGRAM-/0.05MG/KG, QD
  9. PANTOPRAZOLE [Concomitant]
     Active Substance: PANTOPRAZOLE
     Indication: Product used for unknown indication
     Dosage: 40 MILLIGRAM, 2/WEEK
  10. PANTOPRAZOLE [Concomitant]
     Active Substance: PANTOPRAZOLE
     Dosage: 40 MILLIGRAM, BID
  11. CITALOPRAM [Concomitant]
     Active Substance: CITALOPRAM
     Indication: Mental fatigue
     Dosage: 20 MILLIGRAM, QD
     Dates: start: 20200603
  12. CITALOPRAM [Concomitant]
     Active Substance: CITALOPRAM
     Indication: Depression
     Dosage: 40 MILLIGRAM, QD
  13. CITALOPRAM [Concomitant]
     Active Substance: CITALOPRAM
     Indication: Anxiety
  14. DILANTIN [Concomitant]
     Active Substance: PHENYTOIN
     Dosage: UNK
  15. CODEINE [Concomitant]
     Active Substance: CODEINE
     Dosage: 120 MILLIGRAM, QID
     Dates: start: 201910
  16. CODEINE [Concomitant]
     Active Substance: CODEINE
     Dosage: 60 MILLIGRAM, QID
     Dates: start: 20200604
  17. CODEINE [Concomitant]
     Active Substance: CODEINE
     Dosage: 90 MILLIGRAM, QID
  18. MAGNESIUM [Concomitant]
     Active Substance: MAGNESIUM
     Indication: Product used for unknown indication
     Dosage: UNK
  19. VITAMIN K [Concomitant]
     Active Substance: PHYTONADIONE
     Indication: Product used for unknown indication
     Dosage: UNK, QD
  20. VITAMIN E [Concomitant]
     Active Substance: .ALPHA.-TOCOPHEROL
     Indication: Product used for unknown indication
     Dosage: 800 INTERNATIONAL UNIT, QD
  21. VITAMIN A [Concomitant]
     Active Substance: VITAMIN A
     Dosage: 3000 INTERNATIONAL UNIT, QD
  22. SELENIUM [Concomitant]
     Active Substance: SELENIUM
     Indication: Supplementation therapy
     Dosage: 400 MICROGRAM, QD
  23. FOLIC ACID [Concomitant]
     Active Substance: FOLIC ACID
     Dosage: 5 MILLIGRAM, QD
  24. ZINC [Concomitant]
     Active Substance: ZINC
     Dosage: 50 MICROGRAM, QD
  25. ALTACE [Concomitant]
     Active Substance: RAMIPRIL
     Indication: Hypertension
     Dosage: 1.25 MILLIGRAM, QD
  26. OMEPRAZOLE [Concomitant]
     Active Substance: OMEPRAZOLE
     Indication: Product used for unknown indication
     Dosage: 20 MILLIGRAM, BID
  27. CYANOCOBALAMIN [Concomitant]
     Active Substance: CYANOCOBALAMIN
     Indication: Product used for unknown indication
     Dosage: UNK, MONTHLY
  28. PERINDOPRIL [Concomitant]
     Active Substance: PERINDOPRIL
     Dosage: UNK
  29. BUTYLSCOPOLAMINE BROMIDE [Concomitant]
     Active Substance: BUTYLSCOPOLAMINE BROMIDE
     Dosage: 10 MILLIGRAM, QD
  30. TPN [Concomitant]
     Active Substance: AMINO ACIDS\DEXTROSE\ELECTROLYTES NOS\SOYBEAN OIL
     Dosage: 2100 MILLILITER, QD
     Dates: start: 20190913
  31. TPN [Concomitant]
     Active Substance: AMINO ACIDS\DEXTROSE\ELECTROLYTES NOS\SOYBEAN OIL
     Dosage: 1900 MILLILITER, QD
     Dates: start: 20220128
  32. TPN [Concomitant]
     Active Substance: AMINO ACIDS\DEXTROSE\ELECTROLYTES NOS\SOYBEAN OIL
     Dosage: 1900 MILLILITER
  33. TPN [Concomitant]
     Active Substance: AMINO ACIDS\DEXTROSE\ELECTROLYTES NOS\SOYBEAN OIL
     Dosage: 2100 MILLILITER
  34. TPN [Concomitant]
     Active Substance: AMINO ACIDS\DEXTROSE\ELECTROLYTES NOS\SOYBEAN OIL
     Dosage: 2000 MILLILITER
  35. TPN [Concomitant]
     Active Substance: AMINO ACIDS\DEXTROSE\ELECTROLYTES NOS\SOYBEAN OIL
     Dosage: 1950 MILLILITER
  36. TPN [Concomitant]
     Active Substance: AMINO ACIDS\DEXTROSE\ELECTROLYTES NOS\SOYBEAN OIL
     Dosage: 2200 MILLILITER
  37. CODEINE PHOSPHATE [Concomitant]
     Active Substance: CODEINE PHOSPHATE
     Dosage: UNK
  38. AMLODIPINE [Concomitant]
     Active Substance: AMLODIPINE BESYLATE
     Dosage: UNK
  39. CANDESARTAN [Concomitant]
     Active Substance: CANDESARTAN
     Dosage: UNK
  40. LOMOTIL [Concomitant]
     Active Substance: ATROPINE SULFATE\DIPHENOXYLATE HYDROCHLORIDE
     Dosage: UNK
  41. DAPAGLIFLOZIN [Concomitant]
     Active Substance: DAPAGLIFLOZIN
     Dosage: UNK

REACTIONS (32)
  - Renal impairment [Unknown]
  - Renal failure [Unknown]
  - Pharyngeal stenosis [Not Recovered/Not Resolved]
  - Nervous system disorder [Unknown]
  - Product dose omission in error [Unknown]
  - Inappropriate schedule of product administration [Unknown]
  - Nausea [Unknown]
  - Decreased appetite [Unknown]
  - Blood pressure decreased [Unknown]
  - Fatigue [Unknown]
  - Dehydration [Not Recovered/Not Resolved]
  - Gastrointestinal stoma output decreased [Unknown]
  - Swelling [Unknown]
  - Depression [Not Recovered/Not Resolved]
  - Blood pressure increased [Unknown]
  - Complication associated with device [Unknown]
  - Memory impairment [Not Recovered/Not Resolved]
  - Eating disorder [Not Recovered/Not Resolved]
  - COVID-19 [Recovering/Resolving]
  - Illness [Unknown]
  - Abdominal discomfort [Unknown]
  - Weight decreased [Unknown]
  - Hyperhidrosis [Unknown]
  - Gastrointestinal stoma output increased [Unknown]
  - Cystitis [Not Recovered/Not Resolved]
  - Gastrooesophageal reflux disease [Unknown]
  - Renal disorder [Not Recovered/Not Resolved]
  - Oropharyngeal discomfort [Recovering/Resolving]
  - Product quality issue [Unknown]
  - Influenza [Unknown]
  - Vomiting [Unknown]
  - Cough [Not Recovered/Not Resolved]

NARRATIVE: CASE EVENT DATE: 20200527
